FAERS Safety Report 8990238 (Version 1)
Quarter: 2012Q4

REPORT INFORMATION
  Report Type: 
  Country: US (occurrence: US)
  Receive Date: 20121228
  Receipt Date: 20121228
  Transmission Date: 20130627
  Serious: No
  Sender: FDA-Public Use
  Company Number: US-TEVA-374838USA

PATIENT
  Sex: Female

DRUGS (6)
  1. PROAIR HFA [Suspect]
     Indication: BRONCHITIS
     Dates: start: 2007
  2. ADVAIR [Concomitant]
  3. XANAX [Concomitant]
     Indication: ANXIETY
     Dosage: PRN
  4. BENADRYL [Concomitant]
     Dosage: PRN
  5. ZYRTEC [Concomitant]
     Dosage: PRN
  6. HORMONE PATCH [Concomitant]

REACTIONS (1)
  - Dyspnoea [Unknown]
